FAERS Safety Report 21727821 (Version 1)
Quarter: 2022Q4

REPORT INFORMATION
  Report Type: Spontaneous
  Country: US (occurrence: US)
  Receive Date: 20221214
  Receipt Date: 20221214
  Transmission Date: 20230113
  Serious: No
  Sender: FDA-Public Use
  Company Number: US-BAYER-2022A167810

PATIENT
  Age: 84 Year
  Sex: Female

DRUGS (3)
  1. MIRALAX [Suspect]
     Active Substance: POLYETHYLENE GLYCOL 3350
     Dosage: 17GR DISOLVE IN WATER EVERY MORNING
     Route: 048
     Dates: start: 202204, end: 202212
  2. COLACE [Concomitant]
     Active Substance: DOCUSATE SODIUM
  3. ALIGN [Concomitant]
     Active Substance: BIFIDOBACTERIUM LONGUM SUBSP. INFANTIS

REACTIONS (1)
  - Weight decreased [None]
